FAERS Safety Report 22305754 (Version 1)
Quarter: 2023Q2

REPORT INFORMATION
  Report Type: Other
  Country: US (occurrence: US)
  Receive Date: 20230510
  Receipt Date: 20230510
  Transmission Date: 20230722
  Serious: No
  Sender: FDA-Public Use
  Company Number: US-ALVOGEN-2023089132

PATIENT
  Age: 42 Year
  Sex: Female

DRUGS (2)
  1. METHOTREXATE [Suspect]
     Active Substance: METHOTREXATE
     Indication: Ectopic pregnancy
     Dosage: 0.5MG/KG ?SECOND DOSE OF MTX ADMINISTERED ON DAY 4 SECONDARY TO A RISING HCG
  2. METHOTREXATE [Suspect]
     Active Substance: METHOTREXATE
     Indication: Ectopic pregnancy
     Dosage: ?VE CYCLES OF HIGH DOSE MTX (3.5GM/M2 PER CYCLE)

REACTIONS (1)
  - Off label use [Unknown]
